FAERS Safety Report 21066974 (Version 1)
Quarter: 2022Q3

REPORT INFORMATION
  Report Type: Spontaneous
  Country: US (occurrence: US)
  Receive Date: 20220712
  Receipt Date: 20220712
  Transmission Date: 20221027
  Serious: No
  Sender: FDA-Public Use
  Company Number: US-CIPLA LTD.-2022US00785

PATIENT
  Sex: Male

DRUGS (3)
  1. TESTOSTERONE [Suspect]
     Active Substance: TESTOSTERONE
     Indication: Blood testosterone decreased
     Dosage: UNK
     Route: 065
  2. LISINOPRIL [Concomitant]
     Active Substance: LISINOPRIL
     Indication: Hypertension
     Dosage: 10 MILLIGRAM, DAILY
     Route: 065
  3. NADOLOL [Concomitant]
     Active Substance: NADOLOL
     Indication: Hypertension
     Dosage: 20 MILLIGRAM, DAILY
     Route: 065

REACTIONS (2)
  - Liquid product physical issue [Unknown]
  - Product dose omission issue [Not Recovered/Not Resolved]

NARRATIVE: CASE EVENT DATE: 20220202
